FAERS Safety Report 7324240-7 (Version None)
Quarter: 2011Q1

REPORT INFORMATION
  Report Type: 
  Country: None (occurrence: None)
  Receive Date: 20110202
  Receipt Date: 20101221
  Transmission Date: 20110831
  Serious: No
  Sender: FDA-Public Use
  Company Number: 2010-16264

PATIENT
  Age: 48 Year
  Weight: 56.7 kg

DRUGS (3)
  1. VERAPAMIL [Concomitant]
  2. ASPIRIN [Concomitant]
  3. RAPAFLO [Suspect]
     Indication: NEUROGENIC BLADDER
     Dosage: 4 MG, DAILY, ORAL
     Route: 048
     Dates: start: 20101214

REACTIONS (1)
  - SKIN EXFOLIATION [None]
